FAERS Safety Report 20165295 (Version 1)
Quarter: 2021Q4

REPORT INFORMATION
  Report Type: Report from Study
  Country: US (occurrence: US)
  Receive Date: 20211209
  Receipt Date: 20211209
  Transmission Date: 20220303
  Serious: Yes (Other)
  Sender: FDA-Public Use
  Company Number: US-JAZZ-2021-US-021651

PATIENT
  Age: 38 Year
  Sex: Male

DRUGS (7)
  1. XYREM [Suspect]
     Active Substance: SODIUM OXYBATE
     Indication: Narcolepsy
     Dosage: 2.25 GRAM, BID
     Route: 048
     Dates: start: 201809, end: 201809
  2. XYREM [Suspect]
     Active Substance: SODIUM OXYBATE
     Dosage: DOSE ADJUSTMENT
     Route: 048
     Dates: start: 201809, end: 201907
  3. XYREM [Suspect]
     Active Substance: SODIUM OXYBATE
     Dosage: 4 GRAM, BID
     Route: 048
     Dates: start: 201907, end: 202108
  4. ZETIA [Concomitant]
     Active Substance: EZETIMIBE
     Dosage: 0000
     Dates: start: 20181119
  5. JARDIANCE [Concomitant]
     Active Substance: EMPAGLIFLOZIN
     Dosage: 0000
     Dates: start: 20190502
  6. ROBITUSSIN COUGH AND CHEST CONGESTION DM [Concomitant]
     Active Substance: DEXTROMETHORPHAN HYDROBROMIDE\GUAIFENESIN
     Dosage: 0000
     Dates: start: 20190513
  7. TESSALON [Concomitant]
     Active Substance: BENZONATATE
     Dosage: 0000
     Dates: start: 20190513

REACTIONS (2)
  - Diabetes mellitus [Unknown]
  - Depression [Unknown]

NARRATIVE: CASE EVENT DATE: 20200218
